FAERS Safety Report 5619415-9 (Version None)
Quarter: 2008Q1

REPORT INFORMATION
  Report Type: 
  Country: None (occurrence: None)
  Receive Date: 20080114
  Receipt Date: 20070423
  Transmission Date: 20080703
  Serious: Yes (Hospitalization)
  Sender: FDA-Public Use
  Company Number: FEI2007-0719

PATIENT
  Age: 45 Year
  Sex: Female

DRUGS (2)
  1. PARAGARD T 380A [Suspect]
     Indication: CONTRACEPTION
     Dosage: INTRA-UTERINE
     Route: 015
     Dates: start: 20070322
  2. SYNTHROID [Concomitant]

REACTIONS (3)
  - MENORRHAGIA [None]
  - METRORRHAGIA [None]
  - URINARY INCONTINENCE [None]
